FAERS Safety Report 9695611 (Version 3)
Quarter: 2014Q2

REPORT INFORMATION
  Report Type: Spontaneous
  Country: US (occurrence: US)
  Receive Date: 20131119
  Receipt Date: 20140515
  Transmission Date: 20141212
  Serious: Yes (Other)
  Sender: FDA-Public Use
  Company Number: PHHY2013US116267

PATIENT
  Sex: Female

DRUGS (13)
  1. BACLOFEN INTRATHECAL [Suspect]
     Indication: PAIN
     Dosage: 649 UG/DAY
     Route: 037
     Dates: start: 20060718
  2. MIDODRINE [Suspect]
     Dosage: UNK UKN, UNK
  3. HYDROMORPHONE [Suspect]
     Dosage: 16.225 MG/DAY
     Route: 037
  4. BUPIVACAINE [Suspect]
     Dosage: 0.2704 MG/DAY
     Route: 037
  5. PERCOCET [Suspect]
     Dosage: 1 DF, QID (10/325 1 TABLET BY MOUTH FOUR TIMES/DAY)
  6. LUNESTA [Suspect]
  7. EFFEXOR [Suspect]
  8. SYNTHROID [Suspect]
  9. INVANZ [Suspect]
     Route: 042
  10. REMERON [Suspect]
  11. CALCIUM + D3                       /00944201/ [Suspect]
  12. ROBAXIN [Suspect]
  13. INSULIN [Concomitant]
     Indication: DIABETES MELLITUS

REACTIONS (12)
  - Performance status decreased [Recovered/Resolved]
  - Quality of life decreased [Recovered/Resolved]
  - Poor quality sleep [Recovered/Resolved]
  - Decubitus ulcer [Recovered/Resolved]
  - Muscle atrophy [Recovered/Resolved]
  - Weight decreased [Recovered/Resolved]
  - Wound [Recovered/Resolved]
  - Mood altered [Recovered/Resolved]
  - Constipation [Recovered/Resolved]
  - Muscle spasms [Recovered/Resolved]
  - Dry mouth [Recovered/Resolved]
  - Pain [Recovered/Resolved]
